FAERS Safety Report 14431016 (Version 1)
Quarter: 2018Q1

REPORT INFORMATION
  Report Type: Spontaneous
  Country: FR (occurrence: FR)
  Receive Date: 20180124
  Receipt Date: 20180124
  Transmission Date: 20180509
  Serious: Yes (Other)
  Sender: FDA-Public Use
  Company Number: FR-MERCK KGAA-2040692

PATIENT
  Age: 78 Year
  Sex: Female
  Weight: 53 kg

DRUGS (3)
  1. NOVOTHYROX [Suspect]
     Active Substance: LEVOTHYROXINE SODIUM
     Indication: THYROIDECTOMY
     Route: 048
     Dates: start: 2017, end: 201710
  2. UVEDOSE [Concomitant]
     Active Substance: CHOLECALCIFEROL
  3. BIPRETERAX (BI PREDONIUM) [Concomitant]
     Route: 048

REACTIONS (10)
  - Gastrointestinal disorder [Unknown]
  - Chills [Unknown]
  - Headache [Unknown]
  - Asthenia [Unknown]
  - Alopecia [Unknown]
  - Hypertension [Unknown]
  - Blood thyroid stimulating hormone normal [Recovered/Resolved]
  - Malaise [Recovered/Resolved]
  - Insomnia [Recovered/Resolved]
  - Depression [Recovering/Resolving]

NARRATIVE: CASE EVENT DATE: 20170512
